FAERS Safety Report 25213743 (Version 2)
Quarter: 2025Q2

REPORT INFORMATION
  Report Type: Spontaneous
  Country: HU (occurrence: HU)
  Receive Date: 20250418
  Receipt Date: 20250429
  Transmission Date: 20250716
  Serious: Yes (Death, Other)
  Sender: BRISTOL-MYERS SQUIBB COMPANY
  Company Number: HU-BRISTOL-MYERS SQUIBB COMPANY-2025-057010

PATIENT
  Age: 35 Year
  Sex: Male

DRUGS (1)
  1. CAMZYOS [Suspect]
     Active Substance: MAVACAMTEN
     Indication: Product used for unknown indication
     Route: 048
     Dates: start: 2025

REACTIONS (2)
  - Acute left ventricular failure [Fatal]
  - Pulmonary embolism [Fatal]
